FAERS Safety Report 14589284 (Version 1)
Quarter: 2018Q1

REPORT INFORMATION
  Report Type: Report from Study
  Country: None (occurrence: US)
  Receive Date: 20180301
  Receipt Date: 20180301
  Transmission Date: 20180509
  Serious: Yes (Other)
  Sender: FDA-Public Use
  Company Number: US-ABBVIE-18K-163-2265844-00

PATIENT
  Age: 27 Year
  Sex: Female
  Weight: 65.83 kg

DRUGS (13)
  1. HUMIRA [Suspect]
     Active Substance: ADALIMUMAB
     Indication: RHEUMATOID ARTHRITIS
     Route: 058
     Dates: end: 201008
  2. PRILOSEC [Concomitant]
     Active Substance: OMEPRAZOLE MAGNESIUM
     Indication: PRODUCT USED FOR UNKNOWN INDICATION
  3. XELJANZ [Concomitant]
     Active Substance: TOFACITINIB CITRATE
     Indication: PRODUCT USED FOR UNKNOWN INDICATION
  4. PHENERGAN [Concomitant]
     Active Substance: PROMETHAZINE HYDROCHLORIDE
     Indication: NAUSEA
  5. IBUPROFEN. [Concomitant]
     Active Substance: IBUPROFEN
     Indication: PRODUCT USED FOR UNKNOWN INDICATION
  6. MAXALT [Concomitant]
     Active Substance: RIZATRIPTAN BENZOATE
     Indication: MIGRAINE
  7. FIORICET [Concomitant]
     Active Substance: ACETAMINOPHEN\BUTALBITAL\CAFFEINE
     Indication: MIGRAINE
  8. BUSPAR [Concomitant]
     Active Substance: BUSPIRONE HYDROCHLORIDE
     Indication: PRODUCT USED FOR UNKNOWN INDICATION
  9. QUETIAPINE FUMARATE. [Concomitant]
     Active Substance: QUETIAPINE FUMARATE
     Indication: NIGHTMARE
  10. TRAMADOL. [Concomitant]
     Active Substance: TRAMADOL
     Indication: PAIN
  11. HUMIRA [Suspect]
     Active Substance: ADALIMUMAB
     Route: 058
     Dates: start: 20171216, end: 20180217
  12. FLUOXETINE [Concomitant]
     Active Substance: FLUOXETINE HYDROCHLORIDE
     Indication: PRODUCT USED FOR UNKNOWN INDICATION
  13. CYMBALTA [Concomitant]
     Active Substance: DULOXETINE HYDROCHLORIDE
     Indication: PRODUCT USED FOR UNKNOWN INDICATION

REACTIONS (18)
  - Vaginal exfoliation [Unknown]
  - Fungal infection [Recovered/Resolved]
  - Rheumatoid arthritis [Unknown]
  - Drug ineffective [Recovered/Resolved]
  - Chest discomfort [Not Recovered/Not Resolved]
  - Skin exfoliation [Recovering/Resolving]
  - Vaginal exfoliation [Recovered/Resolved]
  - Gastritis [Not Recovered/Not Resolved]
  - Erythema [Recovering/Resolving]
  - Dyspnoea [Not Recovered/Not Resolved]
  - Nephrolithiasis [Recovered/Resolved]
  - Pain [Not Recovered/Not Resolved]
  - Migraine [Not Recovered/Not Resolved]
  - Cholelithiasis [Recovered/Resolved]
  - Scar [Unknown]
  - Skin irritation [Unknown]
  - Migraine [Recovered/Resolved]
  - Fungal infection [Recovering/Resolving]

NARRATIVE: CASE EVENT DATE: 2010
